FAERS Safety Report 7799219-1 (Version None)
Quarter: 2011Q4

REPORT INFORMATION
  Report Type: 
  Country: None (occurrence: None)
  Receive Date: 20111004
  Receipt Date: 20111004
  Transmission Date: 20120403
  Serious: No
  Sender: FDA-Public Use
  Company Number: None

PATIENT
  Sex: Female

DRUGS (6)
  1. TRIMETHOPRIM [Concomitant]
  2. LOSARTAN POTASSIUM [Concomitant]
  3. SYMBICORT [Suspect]
     Indication: EMPHYSEMA
     Dosage: INHALE 2 PUFFS TWICE A DAY. RINSE MOUTH
     Route: 055
     Dates: start: 20110301
  4. DILTIAZEM HCL [Concomitant]
  5. SPIRIVA [Concomitant]
  6. ALBUTEROL SULF INH SOL [Concomitant]

REACTIONS (2)
  - DRUG EFFECT DECREASED [None]
  - DEVICE MALFUNCTION [None]
